FAERS Safety Report 18595612 (Version 1)
Quarter: 2020Q4

REPORT INFORMATION
  Report Type: Report from Study
  Country: BR (occurrence: BR)
  Receive Date: 20201209
  Receipt Date: 20201209
  Transmission Date: 20210114
  Serious: Yes (Other)
  Sender: FDA-Public Use
  Company Number: NVSC2020BR325429

PATIENT
  Sex: Female

DRUGS (1)
  1. DIOVAN HCT [Suspect]
     Active Substance: HYDROCHLOROTHIAZIDE\VALSARTAN
     Indication: PRODUCT USED FOR UNKNOWN INDICATION
     Dosage: 1 DF (160 AND 12 AND HALF MG)
     Route: 065

REACTIONS (10)
  - Dementia [Unknown]
  - Abnormal behaviour [Unknown]
  - Ill-defined disorder [Unknown]
  - Aphasia [Unknown]
  - Laziness [Unknown]
  - Crying [Unknown]
  - Dysstasia [Unknown]
  - Neuropathy peripheral [Unknown]
  - Mood altered [Unknown]
  - Gait inability [Unknown]
